FAERS Safety Report 21996016 (Version 1)
Quarter: 2023Q1

REPORT INFORMATION
  Report Type: Spontaneous
  Country: US (occurrence: US)
  Receive Date: 20230215
  Receipt Date: 20230215
  Transmission Date: 20230418
  Serious: No
  Sender: FDA-Public Use
  Company Number: US-ALLERGAN-2210565US

PATIENT
  Sex: Female

DRUGS (1)
  1. TAZAROTENE [Suspect]
     Active Substance: TAZAROTENE
     Indication: Product used for unknown indication
     Dosage: UNK

REACTIONS (1)
  - Application site discolouration [Unknown]
